FAERS Safety Report 8707633 (Version 2)
Quarter: 2013Q4

REPORT INFORMATION
  Report Type: Spontaneous
  Country: US (occurrence: US)
  Receive Date: 20120805
  Receipt Date: 20131106
  Transmission Date: 20140711
  Serious: Yes (Other)
  Sender: FDA-Public Use
  Company Number: US-009507513-1207USA011423

PATIENT
  Sex: Male

DRUGS (3)
  1. VICTRELIS [Suspect]
  2. PEGASYS [Suspect]
     Route: 058
  3. REBETOL [Suspect]
     Route: 048

REACTIONS (5)
  - White blood cell count decreased [Unknown]
  - Total lung capacity decreased [Unknown]
  - Epistaxis [Unknown]
  - Dyspnoea [Unknown]
  - Haemoglobin decreased [Unknown]
